FAERS Safety Report 8817133 (Version 1)
Quarter: 2012Q4

REPORT INFORMATION
  Report Type: Spontaneous
  Country: US (occurrence: None)
  Receive Date: 20121003
  Receipt Date: 20121003
  Transmission Date: 20130627
  Serious: Yes (Other)
  Sender: FDA-Public Use
  Company Number: None

PATIENT
  Sex: Male
  Weight: 90.72 kg

DRUGS (1)
  1. LISINOPRIL [Suspect]
     Indication: CONGESTIVE HEART FAILURE
     Dosage: 10 MG DAILY ORAL 047
     Route: 048
     Dates: start: 20110614, end: 20110712

REACTIONS (1)
  - Cough [None]
